FAERS Safety Report 5458130-1 (Version None)
Quarter: 2007Q3

REPORT INFORMATION
  Report Type: 
  Country: None (occurrence: None)
  Receive Date: 20070917
  Receipt Date: 20070911
  Transmission Date: 20080115
  Serious: Yes (Other)
  Sender: FDA-Public Use
  Company Number: 2007SP018316

PATIENT
  Age: 66 Year
  Sex: Male
  Weight: 52 kg

DRUGS (15)
  1. TEMODAL [Suspect]
     Indication: GLIOBLASTOMA MULTIFORME
     Dosage: ; PO : 200 MG/M2; QD; PO : 200 MG/M2; QD; PO : 200 MG/M2; QD; PO : 200 MG/M2; QD; PO
     Route: 048
     Dates: start: 20051226, end: 20060824
  2. TEMODAL [Suspect]
     Indication: GLIOBLASTOMA MULTIFORME
     Dosage: ; PO : 200 MG/M2; QD; PO : 200 MG/M2; QD; PO : 200 MG/M2; QD; PO : 200 MG/M2; QD; PO
     Route: 048
     Dates: start: 20060921, end: 20060925
  3. TEMODAL [Suspect]
     Indication: GLIOBLASTOMA MULTIFORME
     Dosage: ; PO : 200 MG/M2; QD; PO : 200 MG/M2; QD; PO : 200 MG/M2; QD; PO : 200 MG/M2; QD; PO
     Route: 048
     Dates: start: 20061019, end: 20061023
  4. TEMODAL [Suspect]
     Indication: GLIOBLASTOMA MULTIFORME
     Dosage: ; PO : 200 MG/M2; QD; PO : 200 MG/M2; QD; PO : 200 MG/M2; QD; PO : 200 MG/M2; QD; PO
     Route: 048
     Dates: start: 20061217, end: 20061221
  5. TEMODAL [Suspect]
     Indication: GLIOBLASTOMA MULTIFORME
     Dosage: ; PO : 200 MG/M2; QD; PO : 200 MG/M2; QD; PO : 200 MG/M2; QD; PO : 200 MG/M2; QD; PO
     Route: 048
     Dates: start: 20070115, end: 20070119
  6. BAKTAR [Concomitant]
  7. FAMOTIDINE [Concomitant]
  8. HYDANTOL [Concomitant]
  9. SERMION [Concomitant]
  10. ONEALFA [Concomitant]
  11. RHYTHMY [Concomitant]
  12. ASPARA-CA [Concomitant]
  13. MAGNESIUM OXIDE [Concomitant]
  14. PROCTOSEDYL [Concomitant]
  15. NASEA-OD [Concomitant]

REACTIONS (6)
  - ALTERED STATE OF CONSCIOUSNESS [None]
  - GLIOBLASTOMA MULTIFORME [None]
  - NEOPLASM PROGRESSION [None]
  - ORAL INTAKE REDUCED [None]
  - PLATELET COUNT DECREASED [None]
  - PNEUMONIA ASPIRATION [None]
